FAERS Safety Report 24015436 (Version 1)
Quarter: 2024Q2

REPORT INFORMATION
  Report Type: Spontaneous
  Country: AT (occurrence: AT)
  Receive Date: 20240626
  Receipt Date: 20240626
  Transmission Date: 20240715
  Serious: Yes (Other)
  Sender: FDA-Public Use
  Company Number: AT-PFM-2024-03607

PATIENT

DRUGS (13)
  1. PROPRANOLOL [Suspect]
     Active Substance: PROPRANOLOL HYDROCHLORIDE
     Indication: Tachycardia
     Dosage: 15 MG/ DAY
     Route: 048
     Dates: start: 202201
  2. PROPRANOLOL [Suspect]
     Active Substance: PROPRANOLOL HYDROCHLORIDE
     Indication: Off label use
  3. CLOZAPINE [Suspect]
     Active Substance: CLOZAPINE
     Indication: Schizophrenia
     Dosage: 350 MG/ DAY
     Route: 048
     Dates: start: 202201
  4. CLOZAPINE [Suspect]
     Active Substance: CLOZAPINE
     Dosage: 450 MG/ DAY
     Route: 048
  5. SERTRALINE [Suspect]
     Active Substance: SERTRALINE HYDROCHLORIDE
     Indication: Depressive symptom
     Dosage: 100 MG/ DAY
     Route: 048
     Dates: start: 202201
  6. TRAZODONE [Suspect]
     Active Substance: TRAZODONE HYDROCHLORIDE
     Indication: Schizophrenia
     Dosage: 150 MG/ DAY
     Route: 048
     Dates: start: 202201
  7. LORAZEPAM [Suspect]
     Active Substance: LORAZEPAM
     Indication: Schizophrenia
     Dosage: 2 MG/ DAY
     Route: 048
     Dates: start: 202201
  8. LORAZEPAM [Suspect]
     Active Substance: LORAZEPAM
     Indication: Thought blocking
     Dosage: UNK
     Route: 048
     Dates: start: 202211
  9. LORAZEPAM [Suspect]
     Active Substance: LORAZEPAM
     Dosage: 2 MG/ DAILY
     Route: 048
  10. AMISULPRIDE [Suspect]
     Active Substance: AMISULPRIDE
     Indication: Product used for unknown indication
     Dosage: 400 MG/ DAY
     Route: 065
  11. CLOZAPINE [Suspect]
     Active Substance: CLOZAPINE
     Dosage: 200 MG/ DAY
     Route: 065
  12. AMISULPRIDE [Suspect]
     Active Substance: AMISULPRIDE
  13. CLOZAPINE [Suspect]
     Active Substance: CLOZAPINE

REACTIONS (9)
  - Hallucination, auditory [Unknown]
  - Suicidal ideation [Unknown]
  - Condition aggravated [Unknown]
  - Thinking abnormal [Unknown]
  - Delusional perception [Unknown]
  - Anxiety [Unknown]
  - Product use issue [Unknown]
  - Product use in unapproved indication [Unknown]
  - Off label use [Unknown]

NARRATIVE: CASE EVENT DATE: 20220101
